FAERS Safety Report 13483401 (Version 1)
Quarter: 2017Q2

REPORT INFORMATION
  Report Type: Report from Study
  Country: HU (occurrence: HU)
  Receive Date: 20170424
  Receipt Date: 20170424
  Transmission Date: 20170830
  Serious: Yes (Other)
  Sender: FDA-Public Use
  Company Number: PHHY2017HU053498

PATIENT
  Age: 79 Year
  Sex: Female

DRUGS (3)
  1. EUCREAS [Suspect]
     Active Substance: METFORMIN HYDROCHLORIDE\VILDAGLIPTIN
     Dosage: 1.5 DF (1 TABLET IN THE MORNING AND A HALF TABLET IN THE EVENING)
     Route: 065
     Dates: start: 20170404
  2. EUCREAS [Suspect]
     Active Substance: METFORMIN HYDROCHLORIDE\VILDAGLIPTIN
     Indication: TYPE 2 DIABETES MELLITUS
     Dosage: 1 DF (1000 MG METFORMIN/50 MG VILDAGLIPTIN), BID (IN THE MORNING AND IN THE EVENING)
     Route: 065
  3. METFORMIN [Suspect]
     Active Substance: METFORMIN HYDROCHLORIDE
     Indication: PRODUCT USED FOR UNKNOWN INDICATION
     Route: 065

REACTIONS (17)
  - Hypoacusis [Unknown]
  - Psychomotor hyperactivity [Unknown]
  - Glycosylated haemoglobin increased [Unknown]
  - Nervousness [Unknown]
  - Angiopathy [Unknown]
  - Balance disorder [Unknown]
  - Blood glucose decreased [Recovered/Resolved]
  - Asthenia [Unknown]
  - Cataract [Unknown]
  - Diabetes mellitus inadequate control [Unknown]
  - Atrophy [Unknown]
  - Drug intolerance [Unknown]
  - Malaise [Unknown]
  - Thyroid disorder [Unknown]
  - Blood pressure abnormal [Unknown]
  - Visual impairment [Unknown]
  - Wrong technique in product usage process [Unknown]

NARRATIVE: CASE EVENT DATE: 20170404
